FAERS Safety Report 6842380-3 (Version None)
Quarter: 2010Q3

REPORT INFORMATION
  Report Type: 
  Country: None (occurrence: None)
  Receive Date: 20100714
  Receipt Date: 20070730
  Transmission Date: 20110219
  Serious: No
  Sender: FDA-Public Use
  Company Number: US-PFIZER INC-2007063800

PATIENT
  Sex: Female
  Weight: 61.818 kg

DRUGS (8)
  1. CHANTIX [Suspect]
     Indication: SMOKING CESSATION THERAPY
     Dates: start: 20070713
  2. ACIPHEX [Concomitant]
  3. SIMVASTATIN [Concomitant]
  4. DETROL LA [Concomitant]
  5. TEMAZEPAM [Concomitant]
  6. SULINDAC [Concomitant]
  7. MULTI-VITAMINS [Concomitant]
  8. CALCIUM WITH VITAMIN D [Concomitant]

REACTIONS (2)
  - ABDOMINAL PAIN UPPER [None]
  - FLATULENCE [None]
